FAERS Safety Report 6993427-5 (Version None)
Quarter: 2010Q3

REPORT INFORMATION
  Report Type: 
  Country: None (occurrence: None)
  Receive Date: 20100917
  Receipt Date: 20100209
  Transmission Date: 20110219
  Serious: No
  Sender: FDA-Public Use
  Company Number: US-ASTRAZENECA-2010SE05949

PATIENT
  Age: 46 Year
  Sex: Female
  Weight: 68.9 kg

DRUGS (3)
  1. SEROQUEL XR [Suspect]
     Indication: DEPRESSION
     Route: 048
     Dates: start: 20090101
  2. FLEXERIL [Concomitant]
  3. HYDROCODONE [Concomitant]

REACTIONS (3)
  - MUSCLE TWITCHING [None]
  - MUSCULOSKELETAL PAIN [None]
  - PARAESTHESIA [None]
